FAERS Safety Report 21141771 (Version 2)
Quarter: 2023Q1

REPORT INFORMATION
  Report Type: Spontaneous
  Country: CA (occurrence: CA)
  Receive Date: 20220728
  Receipt Date: 20230131
  Transmission Date: 20230418
  Serious: Yes (Death, Hospitalization, Other)
  Sender: FDA-Public Use
  Company Number: CA-SAMSUNG BIOEPIS-SB-2022-18219

PATIENT
  Age: 55 Year
  Sex: Female
  Weight: 54 kg

DRUGS (11)
  1. INFLIXIMAB [Suspect]
     Active Substance: INFLIXIMAB
     Indication: Rheumatoid arthritis
     Route: 042
  2. INFLIXIMAB [Suspect]
     Active Substance: INFLIXIMAB
     Indication: Crohn^s disease
     Route: 042
  3. AZATHIOPRINE [Concomitant]
     Active Substance: AZATHIOPRINE
     Indication: Product used for unknown indication
     Route: 065
  4. AZATHIOPRINE [Concomitant]
     Active Substance: AZATHIOPRINE
     Dosage: UNKNOWN
     Route: 065
  5. BUDESONIDE [Concomitant]
     Active Substance: BUDESONIDE
     Indication: Product used for unknown indication
     Dosage: UNKNOWN
     Route: 065
  6. CLONAZEPAM [Concomitant]
     Active Substance: CLONAZEPAM
     Indication: Product used for unknown indication
     Route: 065
  7. POLYETHYLENE GLYCOL 3350 [Concomitant]
     Active Substance: POLYETHYLENE GLYCOL 3350
     Indication: Product used for unknown indication
     Dosage: UNKNOWN
     Route: 065
  8. METHYLPREDNISOLONE SODIUM SUCCINATE [Concomitant]
     Active Substance: METHYLPREDNISOLONE SODIUM SUCCINATE
     Indication: Product used for unknown indication
     Route: 042
  9. MIRTAZAPINE [Concomitant]
     Active Substance: MIRTAZAPINE
     Indication: Product used for unknown indication
     Route: 065
  10. OXYCODONE [Concomitant]
     Active Substance: OXYCODONE
     Indication: Product used for unknown indication
     Route: 065
  11. PREDNISONE [Concomitant]
     Active Substance: PREDNISONE
     Indication: Product used for unknown indication
     Route: 065

REACTIONS (22)
  - Death [Fatal]
  - Arthralgia [Fatal]
  - C-reactive protein increased [Fatal]
  - Condition aggravated [Fatal]
  - Constipation [Fatal]
  - Faecal calprotectin abnormal [Fatal]
  - Fatigue [Fatal]
  - Fibromyalgia [Fatal]
  - Insomnia [Fatal]
  - Nausea [Fatal]
  - Oral mucosal eruption [Fatal]
  - Poor venous access [Fatal]
  - Rash [Fatal]
  - Rheumatoid arthritis [Fatal]
  - Small intestinal obstruction [Fatal]
  - Malaise [Fatal]
  - Drug level above therapeutic [Fatal]
  - Therapeutic response shortened [Fatal]
  - Therapy non-responder [Fatal]
  - Inappropriate schedule of product administration [Fatal]
  - Intentional product use issue [Fatal]
  - Off label use [Fatal]
